FAERS Safety Report 4429281-5 (Version None)
Quarter: 2004Q3

REPORT INFORMATION
  Report Type: 
  Country: None (occurrence: None)
  Receive Date: 20040818
  Receipt Date: 20040818
  Transmission Date: 20050211
  Serious: Yes (Hospitalization)
  Sender: FDA-Public Use
  Company Number: None

PATIENT
  Age: 64 Year
  Sex: Female

DRUGS (1)
  1. ISOVUE-128 [Suspect]

REACTIONS (2)
  - ANAPHYLACTIC REACTION [None]
  - CONTRAST MEDIA REACTION [None]
